FAERS Safety Report 16832727 (Version 1)
Quarter: 2019Q3

REPORT INFORMATION
  Report Type: Spontaneous
  Country: None (occurrence: None)
  Receive Date: 20190920
  Receipt Date: 20190920
  Transmission Date: 20191005
  Serious: No
  Sender: FDA-Public Use
  Company Number: US-BRAINTREE LABORATORIES-190040

PATIENT
  Sex: Male

DRUGS (1)
  1. SUPREP BOWEL PREP [Suspect]
     Active Substance: MAGNESIUM SULFATE\POTASSIUM SULFATE\SODIUM SULFATE
     Dosage: 0.5X6OZ. BOTTLE
     Route: 048
     Dates: start: 20190121, end: 20190121

REACTIONS (1)
  - Retching [None]

NARRATIVE: CASE EVENT DATE: 20190121
